FAERS Safety Report 6531986-7 (Version None)
Quarter: 2010Q1

REPORT INFORMATION
  Report Type: 
  Country: None (occurrence: None)
  Receive Date: 20100108
  Receipt Date: 20100107
  Transmission Date: 20100710
  Serious: Yes (Other)
  Sender: FDA-Public Use
  Company Number: GB-EISAI INC.-E2020-04842-SPO-GB

PATIENT
  Age: 70 Year
  Sex: Male

DRUGS (4)
  1. ARICEPT [Suspect]
     Indication: DRUG USE FOR UNKNOWN INDICATION
     Route: 048
     Dates: start: 20090514, end: 20090602
  2. CO-BENELDOPA [Concomitant]
     Indication: PARKINSON'S DISEASE
     Dosage: UNKNOWN
     Route: 048
  3. DOMPERIDONE [Concomitant]
     Indication: NAUSEA
     Route: 048
  4. ENTACAPONE [Concomitant]
     Indication: PARKINSON'S DISEASE
     Route: 048

REACTIONS (1)
  - PARKINSON'S DISEASE [None]
